FAERS Safety Report 9326284 (Version 1)
Quarter: 2013Q2

REPORT INFORMATION
  Report Type: Spontaneous
  Country: US (occurrence: None)
  Receive Date: 20130603
  Receipt Date: 20130603
  Transmission Date: 20140414
  Serious: No
  Sender: FDA-Public Use
  Company Number: None

PATIENT
  Age: 67 Year
  Sex: Female
  Weight: 72.58 kg

DRUGS (9)
  1. KETOPROFEN [Suspect]
     Indication: ARTHRITIS
     Dosage: ONE TABLET  TWICE DAILY  BY MOUTH
     Route: 048
     Dates: start: 20120726, end: 20121128
  2. LEVOTHYROXINE [Concomitant]
  3. WELCHOL [Concomitant]
  4. FISH OIL [Concomitant]
  5. MTV [Concomitant]
  6. VITAMIN D-3 [Concomitant]
  7. TRIFLEX (GLUSAMINE, CHONDROITIN, MSM) [Concomitant]
  8. METAMUCIL [Concomitant]
  9. REFRESH TEARS [Concomitant]

REACTIONS (5)
  - Musculoskeletal stiffness [None]
  - Asthenia [None]
  - Pain in extremity [None]
  - Neck pain [None]
  - Back pain [None]
